FAERS Safety Report 10424635 (Version 1)
Quarter: 2014Q3

REPORT INFORMATION
  Report Type: Spontaneous
  Country: US (occurrence: US)
  Receive Date: 20140902
  Receipt Date: 20140902
  Transmission Date: 20150326
  Serious: Yes (Hospitalization)
  Sender: FDA-Public Use
  Company Number: US-PFIZER INC-2014242291

PATIENT
  Age: 68 Year
  Sex: Male

DRUGS (1)
  1. INLYTA [Suspect]
     Active Substance: AXITINIB
     Indication: RENAL NEOPLASM
     Dosage: 5 MG, 2X/DAY
     Dates: start: 20140808

REACTIONS (3)
  - Pain in jaw [Unknown]
  - Carotid artery stenosis [Unknown]
  - Pain [Unknown]

NARRATIVE: CASE EVENT DATE: 20140822
